FAERS Safety Report 7817598-3 (Version None)
Quarter: 2011Q4

REPORT INFORMATION
  Report Type: 
  Country: None (occurrence: None)
  Receive Date: 20111017
  Receipt Date: 20111012
  Transmission Date: 20120403
  Serious: Yes (Death, Other)
  Sender: FDA-Public Use
  Company Number: PHHY2011IT90616

PATIENT
  Age: 7 Year
  Sex: Male

DRUGS (6)
  1. CYCLOSPORINE [Suspect]
     Indication: STEM CELL TRANSPLANT
     Dosage: UNK
  2. BUSULFAN [Concomitant]
  3. METHOTREXATE [Concomitant]
  4. ANTI-THYMOCYTE GLOBULIN NOS [Concomitant]
  5. CYCLOPHOSPHAMIDE [Concomitant]
  6. L-PAM [Concomitant]

REACTIONS (4)
  - STATUS EPILEPTICUS [None]
  - ACUTE MYELOID LEUKAEMIA [None]
  - NEUROTOXICITY [None]
  - POSTERIOR REVERSIBLE ENCEPHALOPATHY SYNDROME [None]
